FAERS Safety Report 17151497 (Version 1)
Quarter: 2019Q4

REPORT INFORMATION
  Report Type: Spontaneous
  Country: TW (occurrence: TW)
  Receive Date: 20191213
  Receipt Date: 20191213
  Transmission Date: 20200122
  Serious: Yes (Other)
  Sender: FDA-Public Use
  Company Number: NVSC2019TW058853

PATIENT
  Age: 52 Year
  Sex: Female

DRUGS (18)
  1. COSENTYX [Suspect]
     Active Substance: SECUKINUMAB
     Dosage: 2X
     Route: 030
     Dates: start: 2019
  2. LEFLUNOMID [Suspect]
     Active Substance: LEFLUNOMIDE
     Indication: OSTEOPOROSIS
     Dosage: 10 MG
     Route: 065
     Dates: start: 201508
  3. ACITRETIN. [Concomitant]
     Active Substance: ACITRETIN
     Indication: PALMOPLANTAR PUSTULOSIS
     Dosage: 10 MG, BID
     Route: 065
     Dates: start: 201508
  4. CYCLOSPORINE. [Suspect]
     Active Substance: CYCLOSPORINE
     Indication: OSTEOPOROSIS
     Dosage: 100 MG
     Route: 065
     Dates: start: 201508
  5. CEFADROXIL. [Concomitant]
     Active Substance: CEFADROXIL
     Indication: PALMOPLANTAR PUSTULOSIS
     Dosage: 500 MG, 1 W
     Route: 065
  6. COSENTYX [Suspect]
     Active Substance: SECUKINUMAB
     Indication: PSORIASIS
     Dosage: 300 MG, QMO
     Route: 030
     Dates: start: 20180606
  7. COSENTYX [Suspect]
     Active Substance: SECUKINUMAB
     Dosage: 2ND DOSE
     Route: 030
     Dates: start: 20180704
  8. LEFLUNOMID [Suspect]
     Active Substance: LEFLUNOMIDE
     Dosage: 20 MG
     Route: 065
     Dates: start: 2015
  9. LEFLUNOMID [Suspect]
     Active Substance: LEFLUNOMIDE
     Dosage: 10 MG
     Route: 065
     Dates: start: 2017, end: 20181017
  10. DAIVOBET [Concomitant]
     Active Substance: BETAMETHASONE DIPROPIONATE\CALCIPOTRIENE
     Indication: PALMOPLANTAR PUSTULOSIS
     Dosage: UNK, CALCIPOTRIOL 50 MCG
     Route: 065
  11. CYCLOSPORINE. [Suspect]
     Active Substance: CYCLOSPORINE
     Dosage: 125 MG
     Route: 065
     Dates: start: 201603
  12. CYCLOSPORINE. [Suspect]
     Active Substance: CYCLOSPORINE
     Dosage: TAPERING
     Route: 065
  13. CYCLOSPORINE. [Suspect]
     Active Substance: CYCLOSPORINE
     Dosage: 100 MG
     Route: 065
     Dates: start: 2017
  14. BETAMETHASONE G [Concomitant]
     Indication: PALMOPLANTAR PUSTULOSIS
     Dosage: UNK, 1 %
     Route: 065
  15. CYCLOSPORINE. [Suspect]
     Active Substance: CYCLOSPORINE
     Dosage: 100 MG
     Route: 065
     Dates: start: 2018, end: 20181017
  16. CYCLOSPORINE. [Suspect]
     Active Substance: CYCLOSPORINE
     Dosage: 100 MG, QOD
     Route: 065
     Dates: start: 2018
  17. CELEBREX [Suspect]
     Active Substance: CELECOXIB
     Indication: PRODUCT USED FOR UNKNOWN INDICATION
     Dosage: 1 DF, BID
     Route: 065
     Dates: start: 2016
  18. HUMIRA [Suspect]
     Active Substance: ADALIMUMAB
     Indication: PRODUCT USED FOR UNKNOWN INDICATION
     Dosage: 40 MG, Q2W
     Route: 065
     Dates: start: 2016

REACTIONS (18)
  - Polyarthritis [Unknown]
  - Acne [Recovering/Resolving]
  - Back pain [Unknown]
  - Arthritis [Unknown]
  - Decreased appetite [Unknown]
  - Folliculitis [Recovering/Resolving]
  - Alopecia [Unknown]
  - Myalgia [Unknown]
  - Hyperthyroidism [Unknown]
  - Pruritus [Not Recovered/Not Resolved]
  - Dyshidrotic eczema [Unknown]
  - Asthenia [Unknown]
  - Joint swelling [Recovering/Resolving]
  - Rash papular [Not Recovered/Not Resolved]
  - Eczema [Recovering/Resolving]
  - Tachycardia [Unknown]
  - Onycholysis [Unknown]
  - Skin lesion [Recovering/Resolving]

NARRATIVE: CASE EVENT DATE: 201603
